FAERS Safety Report 6369747-4 (Version None)
Quarter: 2009Q3

REPORT INFORMATION
  Report Type: 
  Country: None (occurrence: None)
  Receive Date: 20090918
  Receipt Date: 20090904
  Transmission Date: 20100115
  Serious: Yes (Hospitalization)
  Sender: FDA-Public Use
  Company Number: M0900062

PATIENT
  Age: 69 Year
  Sex: Male

DRUGS (7)
  1. PACERONE [Suspect]
     Indication: CARDIAC ABLATION
     Dosage: 3 IN 1 D, ORAL
     Route: 048
     Dates: start: 20090401, end: 20090801
  2. PACERONE [Suspect]
     Indication: CARDIAC ABLATION
     Dosage: 3 IN 1 D, ORAL
     Route: 048
     Dates: start: 20090801, end: 20090801
  3. PACERONE [Suspect]
     Indication: CARDIAC ABLATION
     Dosage: 1 IN 1 D, ORAL
     Route: 048
     Dates: start: 20090801
  4. ACETYLSALICYLIC ACID [Concomitant]
  5. METOPROLOL SUCCINATE [Concomitant]
  6. DIGOXIN [Concomitant]
  7. CLOPIDOGREL [Concomitant]

REACTIONS (2)
  - LUNG INFECTION [None]
  - PNEUMONIA [None]
